FAERS Safety Report 19906002 (Version 1)
Quarter: 2021Q4

REPORT INFORMATION
  Report Type: Spontaneous
  Country: PT (occurrence: PT)
  Receive Date: 20211001
  Receipt Date: 20211001
  Transmission Date: 20220303
  Serious: Yes (Other)
  Sender: FDA-Public Use
  Company Number: 2021A750962

PATIENT
  Age: 3 Year
  Sex: Female
  Weight: 14 kg

DRUGS (1)
  1. SELUMETINIB [Suspect]
     Active Substance: SELUMETINIB
     Route: 065

REACTIONS (12)
  - Neurofibroma [Unknown]
  - Neurofibromatosis [Unknown]
  - Eye injury [Unknown]
  - Photophobia [Unknown]
  - Lymphocyte count decreased [Unknown]
  - Hair colour changes [Unknown]
  - Abdominal pain upper [Unknown]
  - Blood creatine phosphokinase increased [Unknown]
  - Dry skin [Unknown]
  - Alopecia [Unknown]
  - Rash macular [Unknown]
  - Diarrhoea [Unknown]
